FAERS Safety Report 6924439-5 (Version None)
Quarter: 2010Q3

REPORT INFORMATION
  Report Type: 
  Country: None (occurrence: None)
  Receive Date: 20100810
  Receipt Date: 20100730
  Transmission Date: 20110219
  Serious: Yes (Hospitalization)
  Sender: FDA-Public Use
  Company Number: 014743

PATIENT
  Sex: Female

DRUGS (4)
  1. MONOKET [Suspect]
     Dosage: 40 MG ORAL
     Route: 048
     Dates: start: 19800618
  2. ASPIRIN [Concomitant]
  3. ANGIZEM [Concomitant]
  4. INHIBACE [Concomitant]

REACTIONS (3)
  - LOSS OF CONSCIOUSNESS [None]
  - SYNCOPE [None]
  - VISION BLURRED [None]
